FAERS Safety Report 7034387-0 (Version None)
Quarter: 2010Q4

REPORT INFORMATION
  Report Type: 
  Country: None (occurrence: None)
  Receive Date: 20101008
  Receipt Date: 20100927
  Transmission Date: 20110411
  Serious: Yes (Hospitalization)
  Sender: FDA-Public Use
  Company Number: DK-JNJFOC-20100904871

PATIENT
  Age: 26 Year
  Sex: Female
  Weight: 61.5 kg

DRUGS (4)
  1. INFLIXIMAB, RECOMBINANT [Suspect]
     Indication: COLITIS ULCERATIVE
     Route: 042
  2. ASACOL [Concomitant]
     Indication: COLITIS ULCERATIVE
     Route: 048
  3. PRIMCILLIN [Concomitant]
     Indication: INFECTION
     Route: 048
  4. SURLID [Concomitant]
     Indication: INFECTION
     Route: 048

REACTIONS (3)
  - CHEST PAIN [None]
  - COUGH [None]
  - NASOPHARYNGITIS [None]
